FAERS Safety Report 19899674 (Version 1)
Quarter: 2021Q3

REPORT INFORMATION
  Report Type: Spontaneous
  Country: US (occurrence: US)
  Receive Date: 20210929
  Receipt Date: 20210929
  Transmission Date: 20211014
  Serious: Yes (Other)
  Sender: FDA-Public Use
  Company Number: None

PATIENT
  Age: 33 Year
  Sex: Female
  Weight: 118.8 kg

DRUGS (1)
  1. REGEN?COV [Suspect]
     Active Substance: CASIRIVIMAB\IMDEVIMAB
     Indication: COVID-19
     Route: 042
     Dates: start: 20210928, end: 20210928

REACTIONS (5)
  - Foetal heart rate deceleration abnormality [None]
  - Foetal hypokinesia [None]
  - Caesarean section [None]
  - Headache [None]
  - Maternal drugs affecting foetus [None]

NARRATIVE: CASE EVENT DATE: 20210928
